FAERS Safety Report 8049439-6 (Version None)
Quarter: 2012Q1

REPORT INFORMATION
  Report Type: 
  Country: None (occurrence: None)
  Receive Date: 20120111
  Receipt Date: 20111229
  Transmission Date: 20120608
  Serious: Yes (Hospitalization)
  Sender: FDA-Public Use
  Company Number: JPI-P-019061

PATIENT
  Age: 34 Year
  Sex: Female
  Weight: 102.9665 kg

DRUGS (9)
  1. XYREM [Suspect]
     Indication: CATAPLEXY
     Dosage: (UNKNOWN) , ORAL
     Route: 048
     Dates: start: 20111001, end: 20110101
  2. DICLOFENAC SODIUM [Concomitant]
  3. OMEPRAZOLE [Concomitant]
  4. FLUTICASONE PROPIONATE W/SALMETEROL [Concomitant]
  5. ONDANSETRON HCL [Concomitant]
  6. DESVENLAFAXINE SUCCINATE [Suspect]
  7. LACTULOSE [Concomitant]
  8. RIFAXIMIN [Concomitant]
  9. METOPROLOL [Concomitant]

REACTIONS (3)
  - VIRAL INFECTION [None]
  - DEHYDRATION [None]
  - CONVULSION [None]
